FAERS Safety Report 10645058 (Version 1)
Quarter: 2014Q4

REPORT INFORMATION
  Report Type: Spontaneous
  Country: US (occurrence: None)
  Receive Date: 20141209
  Receipt Date: 20141209
  Transmission Date: 20150529
  Serious: Yes (Disabling)
  Sender: FDA-Public Use
  Company Number: 20140772

PATIENT
  Sex: Female

DRUGS (1)
  1. PROGESTERONE INJECTION USP [Suspect]
     Active Substance: PROGESTERONE
     Indication: PRODUCT USED FOR UNKNOWN INDICATION
     Dosage: INJECTION NOS
     Dates: start: 20141117, end: 20141117

REACTIONS (2)
  - Exposure during pregnancy [None]
  - Wrong drug administered [None]

NARRATIVE: CASE EVENT DATE: 20141117
